FAERS Safety Report 6544184-8 (Version None)
Quarter: 2010Q1

REPORT INFORMATION
  Report Type: 
  Country: None (occurrence: None)
  Receive Date: 20100119
  Receipt Date: 20100119
  Transmission Date: 20100710
  Serious: Yes (Other)
  Sender: FDA-Public Use
  Company Number: None

PATIENT
  Age: 32 Year
  Sex: Male
  Weight: 136.0791 kg

DRUGS (1)
  1. ROLAIDS CALCIUM CARBONATE 550MG MCNEIL CONSUMER HEALTHCARE [Suspect]
     Indication: DYSPEPSIA
     Dosage: 2-4 TABLETS PER DAY AS NEEDED PO
     Route: 048

REACTIONS (3)
  - ABDOMINAL PAIN UPPER [None]
  - DIARRHOEA [None]
  - VOMITING [None]
